FAERS Safety Report 5899548-2 (Version None)
Quarter: 2008Q3

REPORT INFORMATION
  Report Type: 
  Country: None (occurrence: None)
  Receive Date: 20080925
  Receipt Date: 20080925
  Transmission Date: 20090109
  Serious: Yes (Hospitalization)
  Sender: FDA-Public Use
  Company Number: None

PATIENT
  Sex: Female
  Weight: 40.45 kg

DRUGS (2)
  1. CISPLATIN [Suspect]
     Dosage: 39 MG
  2. CETUXIMAB [Suspect]
     Dosage: 328 MG

REACTIONS (5)
  - DECREASED APPETITE [None]
  - DEHYDRATION [None]
  - FAILURE TO THRIVE [None]
  - NAUSEA [None]
  - VOMITING [None]
